FAERS Safety Report 7650082-9 (Version None)
Quarter: 2011Q3

REPORT INFORMATION
  Report Type: 
  Country: None (occurrence: None)
  Receive Date: 20110802
  Receipt Date: 20110725
  Transmission Date: 20111222
  Serious: Yes (Hospitalization, Disabling)
  Sender: FDA-Public Use
  Company Number: FR-JNJFOC-20110601527

PATIENT
  Age: 56 Year
  Sex: Female

DRUGS (1)
  1. LEVOFLOXACIN [Suspect]
     Indication: BRONCHOPNEUMONIA
     Route: 048
     Dates: start: 20110518, end: 20110518

REACTIONS (7)
  - ARTHRALGIA [None]
  - HYPOACUSIS [None]
  - TENDONITIS [None]
  - MYALGIA [None]
  - TREMOR [None]
  - FATIGUE [None]
  - HYPERAESTHESIA [None]
